FAERS Safety Report 9376523 (Version 1)
Quarter: 2013Q2

REPORT INFORMATION
  Report Type: Spontaneous
  Country: US (occurrence: None)
  Receive Date: 20130628
  Receipt Date: 20130628
  Transmission Date: 20140414
  Serious: Yes (Other)
  Sender: FDA-Public Use
  Company Number: None

PATIENT
  Age: 74 Year
  Sex: Female
  Weight: 72.4 kg

DRUGS (7)
  1. MULTIHANCE [Suspect]
     Indication: ISCHAEMIC STROKE
     Route: 042
     Dates: start: 20120624, end: 20120624
  2. MULTIHANCE [Suspect]
     Indication: NUCLEAR MAGNETIC RESONANCE IMAGING
     Route: 042
     Dates: start: 20120624, end: 20120624
  3. MULTIHANCE [Suspect]
     Indication: SCAN WITH CONTRAST
     Route: 042
     Dates: start: 20120624, end: 20120624
  4. ASPIRIN [Concomitant]
  5. HEPARIN [Concomitant]
  6. REGULAR INSULIN SLIDING SCALE [Concomitant]
  7. NS [Concomitant]

REACTIONS (4)
  - Sneezing [None]
  - Flushing [None]
  - Eye pruritus [None]
  - Oxygen saturation decreased [None]
